FAERS Safety Report 24273560 (Version 1)
Quarter: 2024Q3

REPORT INFORMATION
  Report Type: Spontaneous
  Country: US (occurrence: US)
  Receive Date: 20240902
  Receipt Date: 20240902
  Transmission Date: 20241017
  Serious: No
  Sender: ASTELLAS
  Company Number: US-ASTELLAS-2024US017971

PATIENT
  Age: 76 Year
  Sex: Male
  Weight: 92 kg

DRUGS (2)
  1. PADCEV [Suspect]
     Active Substance: ENFORTUMAB VEDOTIN-EJFV
     Indication: Bladder cancer
     Dosage: UNK, CYCLIC (POWDER FOR SOLUTION FOR INJECTION)
     Route: 042
     Dates: start: 20230816
  2. PADCEV [Suspect]
     Active Substance: ENFORTUMAB VEDOTIN-EJFV
     Dosage: 0.5 MG/KG, CYCLIC (POWDER FOR SOLUTION FOR INJECTION)
     Route: 042

REACTIONS (3)
  - Rhinorrhoea [Recovered/Resolved]
  - Lacrimation increased [Recovering/Resolving]
  - Rash [Unknown]
